FAERS Safety Report 11319408 (Version 1)
Quarter: 2015Q3

REPORT INFORMATION
  Report Type: Spontaneous
  Country: US (occurrence: None)
  Receive Date: 20150727
  Receipt Date: 20150727
  Transmission Date: 20151125
  Serious: Yes (Hospitalization, Other)
  Sender: FDA-Public Use
  Company Number: US-ZYDUS-008656

PATIENT
  Age: 16 Year
  Sex: Male

DRUGS (4)
  1. METHYLPHENIDATE (METHYLPHENIDATE) [Suspect]
     Active Substance: METHYLPHENIDATE
  2. LAMOTRIGINE. [Suspect]
     Active Substance: LAMOTRIGINE
     Indication: MOOD ALTERED
     Dosage: 12.50MG 2.00 TIMES PER-1DAYS
  3. ESCITALOPRAM [Suspect]
     Active Substance: ESCITALOPRAM OXALATE
  4. FLUOXETINE (FLUOXETINE) [Suspect]
     Active Substance: FLUOXETINE HYDROCHLORIDE
     Indication: COGNITIVE DISORDER

REACTIONS (17)
  - Psychotic disorder [None]
  - Tachyphrenia [None]
  - Tachycardia [None]
  - Paranoia [None]
  - Hypertension [None]
  - Panic reaction [None]
  - Amnesia [None]
  - Attention deficit/hyperactivity disorder [None]
  - Restlessness [None]
  - Anxiety [None]
  - Hypophagia [None]
  - Insomnia [None]
  - Therapy cessation [None]
  - Suicide attempt [None]
  - Intentional overdose [None]
  - Chest discomfort [None]
  - Hallucinations, mixed [None]
